FAERS Safety Report 15730216 (Version 1)
Quarter: 2018Q4

REPORT INFORMATION
  Report Type: Spontaneous
  Country: US (occurrence: US)
  Receive Date: 20181216
  Receipt Date: 20181216
  Transmission Date: 20190205
  Serious: Yes (Other)
  Sender: FDA-Public Use
  Company Number: None

PATIENT
  Age: 68 Year
  Sex: Male
  Weight: 101.25 kg

DRUGS (9)
  1. ULORIC [Concomitant]
     Active Substance: FEBUXOSTAT
  2. CARVEDILOL. [Concomitant]
     Active Substance: CARVEDILOL
  3. ATORVASTATIN [Concomitant]
     Active Substance: ATORVASTATIN
  4. MITIGARE [Suspect]
     Active Substance: COLCHICINE
     Indication: GOUT
     Dosage: ?          QUANTITY:1 CAPSULE(S);?
     Route: 048
  5. TELMISARTAN. [Concomitant]
     Active Substance: TELMISARTAN
  6. COQ10 [Concomitant]
     Active Substance: UBIDECARENONE
  7. BRILINTA [Concomitant]
     Active Substance: TICAGRELOR
  8. EZETIMIBE. [Concomitant]
     Active Substance: EZETIMIBE
  9. ASPIRIN. [Concomitant]
     Active Substance: ASPIRIN

REACTIONS (2)
  - Dizziness [None]
  - Asthenia [None]

NARRATIVE: CASE EVENT DATE: 20181215
